FAERS Safety Report 26007166 (Version 1)
Quarter: 2025Q4

REPORT INFORMATION
  Report Type: Report from Study
  Country: CA (occurrence: CA)
  Receive Date: 20251106
  Receipt Date: 20251106
  Transmission Date: 20260118
  Serious: Yes (Other)
  Sender: BAUSCH AND LOMB
  Company Number: CA-BAUSCH-BH-2025-016315

PATIENT
  Age: 49 Year
  Sex: Female

DRUGS (2)
  1. SILIQ [Suspect]
     Active Substance: BRODALUMAB
     Indication: Psoriasis
     Dosage: 210MG/1.5ML, WEEKLY INDUCTION
     Route: 058
     Dates: start: 20250812, end: 202508
  2. SILIQ [Suspect]
     Active Substance: BRODALUMAB
     Dosage: 210 MG/1.5 ML, Q2W
     Route: 058
     Dates: start: 202509

REACTIONS (5)
  - Medical procedure [Unknown]
  - Pruritus [Recovering/Resolving]
  - Nail bed bleeding [Unknown]
  - Urine abnormality [Recovered/Resolved]
  - Patient dissatisfaction with treatment [Unknown]

NARRATIVE: CASE EVENT DATE: 20250101
